FAERS Safety Report 6199947-8 (Version None)
Quarter: 2009Q2

REPORT INFORMATION
  Report Type: 
  Country: None (occurrence: None)
  Receive Date: 20090522
  Receipt Date: 20090512
  Transmission Date: 20091009
  Serious: Yes (Hospitalization)
  Sender: FDA-Public Use
  Company Number: US-BIOGENIDEC-2009BI014669

PATIENT
  Age: 67 Year
  Sex: Male
  Weight: 99 kg

DRUGS (21)
  1. TYSABRI [Suspect]
     Indication: MULTIPLE SCLEROSIS
     Route: 042
     Dates: start: 20080612, end: 20090106
  2. ACETAMINOPHEN [Concomitant]
  3. CALCIUM CARBONATE [Concomitant]
  4. FLUOXETINE HCL [Concomitant]
  5. METOPROLOL SUCCINATE [Concomitant]
  6. ZOCOR [Concomitant]
  7. CYANOCOBALAMIN [Concomitant]
  8. NIACIN [Concomitant]
  9. METAMUCIL [Concomitant]
  10. GABAPENTIN [Concomitant]
  11. FOLIC ACID [Concomitant]
  12. PROTONIX [Concomitant]
  13. NORTRIPTYLINE HCL [Concomitant]
  14. CYCLOBENZAPRINE [Concomitant]
  15. OXYCODONE [Concomitant]
  16. TAMSULOSIN HCL [Concomitant]
  17. ATIVAN [Concomitant]
  18. LASIX [Concomitant]
  19. LISINOPRIL [Concomitant]
  20. TRILEPTAL [Concomitant]
  21. HYDROCORTISONE [Concomitant]
     Dates: start: 20080401

REACTIONS (2)
  - PRESYNCOPE [None]
  - RENAL FAILURE ACUTE [None]
